FAERS Safety Report 8191658-2 (Version None)
Quarter: 2012Q1

REPORT INFORMATION
  Report Type: 
  Country: None (occurrence: None)
  Receive Date: 20120307
  Receipt Date: 20110923
  Transmission Date: 20120608
  Serious: No
  Sender: FDA-Public Use
  Company Number: US-ASTRAZENECA-2011SE57278

PATIENT
  Age: 60 Year
  Sex: Male
  Weight: 88.5 kg

DRUGS (1)
  1. ZOMIG [Suspect]
     Indication: MIGRAINE
     Dosage: 5 MILLIGRAMS IN TWO PIECES, TOTAL DAILY DOSE: 5 MILLIGRAMS
     Route: 048
     Dates: start: 20050101

REACTIONS (2)
  - HEADACHE [None]
  - INTENTIONAL DRUG MISUSE [None]
